FAERS Safety Report 7717125-5 (Version None)
Quarter: 2011Q3

REPORT INFORMATION
  Report Type: 
  Country: None (occurrence: None)
  Receive Date: 20110826
  Receipt Date: 20110826
  Transmission Date: 20111222
  Serious: Yes (Hospitalization)
  Sender: FDA-Public Use
  Company Number: None

PATIENT
  Sex: Female
  Weight: 65.45 kg

DRUGS (2)
  1. CARBOPLATIN [Suspect]
     Dosage: 268 MG
  2. PACLITAXEL [Suspect]
     Dosage: 123 MG

REACTIONS (10)
  - NEUTROPENIA [None]
  - PLATELET COUNT DECREASED [None]
  - BLOOD POTASSIUM DECREASED [None]
  - ASPARTATE AMINOTRANSFERASE INCREASED [None]
  - BLOOD ELECTROLYTES DECREASED [None]
  - BLOOD UREA INCREASED [None]
  - ANAEMIA [None]
  - CONVULSION [None]
  - PYREXIA [None]
  - WHITE BLOOD CELL COUNT DECREASED [None]
